FAERS Safety Report 21538020 (Version 2)
Quarter: 2023Q2

REPORT INFORMATION
  Report Type: Report from Study
  Country: US (occurrence: US)
  Receive Date: 20221101
  Receipt Date: 20230411
  Transmission Date: 20230721
  Serious: Yes (Other)
  Sender: FDA-Public Use
  Company Number: US-BIOVITRUM-2022US11049

PATIENT
  Age: 17 Year
  Sex: Female

DRUGS (2)
  1. KINERET [Suspect]
     Active Substance: ANAKINRA
     Indication: Cryopyrin associated periodic syndrome
     Dosage: DAILY
     Route: 058
     Dates: start: 20220920
  2. KINERET [Suspect]
     Active Substance: ANAKINRA
     Indication: Product used for unknown indication
     Dosage: DAILY
     Route: 058

REACTIONS (7)
  - Off label use [Unknown]
  - Injection site pain [Unknown]
  - Incorrect dose administered [Unknown]
  - Product use issue [Unknown]
  - Urticaria [Unknown]
  - Adverse reaction [Unknown]
  - Dermatitis bullous [Unknown]

NARRATIVE: CASE EVENT DATE: 20220920
